FAERS Safety Report 7610477-6 (Version None)
Quarter: 2011Q3

REPORT INFORMATION
  Report Type: 
  Country: None (occurrence: None)
  Receive Date: 20110715
  Receipt Date: 20081120
  Transmission Date: 20111222
  Serious: Yes (Disabling, Other)
  Sender: FDA-Public Use
  Company Number: US-BAYER-200839360NA

PATIENT
  Age: 70 Year
  Sex: Male
  Weight: 80.726 kg

DRUGS (14)
  1. HYDROCHLOROTHIAZIDE [Concomitant]
     Dosage: UNK UNK, QD
     Route: 048
  2. AMLODIPINE [Concomitant]
  3. CONTRAST MEDIA [Concomitant]
     Indication: CATHETERISATION CARDIAC
     Dosage: UNK
     Dates: start: 20060424
  4. DIOVAN [Concomitant]
     Dosage: 80 MG, BID
     Route: 048
  5. ZOCOR [Concomitant]
     Dosage: 20 MG, QD
     Route: 048
  6. PRANDIN [Concomitant]
     Dosage: 2 MG, TID
     Route: 048
  7. INSULIN [Concomitant]
     Dosage: 40 U, QD, AT BEDTIME
     Route: 058
  8. TRASYLOL [Suspect]
     Indication: CORONARY ARTERY BYPASS
     Dosage: UNK
     Route: 042
     Dates: start: 20060425, end: 20060425
  9. NORVASC [Concomitant]
     Dosage: 5 MG, QD
     Route: 048
  10. GLUCOVANCE [Concomitant]
     Dosage: UNK UNK, BID
     Route: 048
  11. TOPROL-XL [Concomitant]
     Dosage: 25 MG, QD
     Route: 048
  12. LASIX [Concomitant]
     Dosage: 40 MG, QD
     Route: 048
  13. NAPROXEN (ALEVE) [Concomitant]
     Dosage: AS NEEDED
     Route: 048
  14. RED BLOOD CELLS [Concomitant]
     Dosage: 2 U
     Route: 042
     Dates: start: 20060425

REACTIONS (10)
  - RENAL FAILURE ACUTE [None]
  - PAIN [None]
  - UNEVALUABLE EVENT [None]
  - EMOTIONAL DISTRESS [None]
  - DEPRESSION [None]
  - NERVOUSNESS [None]
  - INJURY [None]
  - HYPERTENSION [None]
  - ANHEDONIA [None]
  - FEAR OF DEATH [None]
